FAERS Safety Report 11661775 (Version 1)
Quarter: 2015Q4

REPORT INFORMATION
  Report Type: Spontaneous
  Country: US (occurrence: US)
  Receive Date: 20151026
  Receipt Date: 20151026
  Transmission Date: 20160304
  Serious: No
  Sender: FDA-Public Use
  Company Number: US-UPSHER-SMITH LABORATORIES, INC.-14003047

PATIENT
  Age: 71 Year
  Sex: Female

DRUGS (17)
  1. CLINDAMYCIN HYDROCHLORIDE. [Suspect]
     Active Substance: CLINDAMYCIN HYDROCHLORIDE
     Indication: INFECTION PROPHYLAXIS
     Dosage: 1 CAPSULE, QD
     Route: 048
     Dates: start: 201409, end: 201409
  2. LEVOFLOXACIN. [Suspect]
     Active Substance: LEVOFLOXACIN
     Indication: OSTEOMYELITIS
     Dosage: UNK, UNK
     Route: 048
     Dates: start: 201404, end: 201405
  3. METFORMIN [Concomitant]
     Active Substance: METFORMIN HYDROCHLORIDE
     Indication: DIABETES MELLITUS
     Dosage: 500 MG, QD
  4. LOSARTAN POTASSIUM/HCTZ [Concomitant]
     Indication: HYPERTENSION
     Dosage: 100/25 MG, QD
  5. RANITIDINE [Concomitant]
     Active Substance: RANITIDINE\RANITIDINE HYDROCHLORIDE
  6. SIMVASTATIN. [Concomitant]
     Active Substance: SIMVASTATIN
     Indication: BLOOD CHOLESTEROL INCREASED
     Dosage: 40 MG, QD
  7. NAMENDA [Concomitant]
     Active Substance: MEMANTINE HYDROCHLORIDE
     Indication: MEMORY IMPAIRMENT
     Dosage: 10 MG, BID
  8. ADVIL PM [Concomitant]
     Active Substance: DIPHENHYDRAMINE CITRATE\IBUPROFEN
  9. KLOR-CON M [Suspect]
     Active Substance: POTASSIUM CHLORIDE
     Dosage: 40 MEQ, QD
     Route: 048
     Dates: start: 2012, end: 201407
  10. KEFLEX [Suspect]
     Active Substance: CEPHALEXIN
     Indication: OSTEOMYELITIS
     Dosage: UNK, UNK
     Route: 048
     Dates: start: 201403, end: 201404
  11. TYLENOL [Concomitant]
     Active Substance: ACETAMINOPHEN
  12. SUDAFED [Concomitant]
     Active Substance: PSEUDOEPHEDRINE HYDROCHLORIDE
  13. LASIX [Concomitant]
     Active Substance: FUROSEMIDE
     Indication: FLUID RETENTION
     Dosage: 20 MG, PRN
  14. NASONEX [Concomitant]
     Active Substance: MOMETASONE FUROATE
     Dosage: 50 MCG, PRN
  15. MULTIVITAMINS [Concomitant]
     Active Substance: VITAMINS
     Dosage: UNK
  16. KLOR-CON M [Suspect]
     Active Substance: POTASSIUM CHLORIDE
     Indication: BLOOD POTASSIUM DECREASED
     Dosage: 20 MEQ, QD
     Route: 048
     Dates: start: 201407
  17. OCUVITE ADULT 50+ [Concomitant]

REACTIONS (5)
  - Pruritus genital [Recovered/Resolved]
  - Drug interaction [Recovered/Resolved]
  - Pruritus [Not Recovered/Not Resolved]
  - Genital swelling [Recovered/Resolved]
  - Genital haemorrhage [Recovered/Resolved]

NARRATIVE: CASE EVENT DATE: 201403
